FAERS Safety Report 12192789 (Version 2)
Quarter: 2016Q2

REPORT INFORMATION
  Report Type: Report from Study
  Country: US (occurrence: US)
  Receive Date: 20160318
  Receipt Date: 20160401
  Transmission Date: 20160815
  Serious: Yes (Other)
  Sender: FDA-Public Use
  Company Number: US-BIOGEN-2016BI00206135

PATIENT
  Age: 74 Year
  Sex: Female

DRUGS (1)
  1. AVONEX [Suspect]
     Active Substance: INTERFERON BETA-1A
     Indication: MULTIPLE SCLEROSIS
     Route: 065
     Dates: start: 20030730

REACTIONS (2)
  - Balance disorder [Not Recovered/Not Resolved]
  - Schwannoma [Unknown]

NARRATIVE: CASE EVENT DATE: 201603
